FAERS Safety Report 5366058-0 (Version None)
Quarter: 2007Q2

REPORT INFORMATION
  Report Type: 
  Country: None (occurrence: None)
  Receive Date: 20070605
  Receipt Date: 20061221
  Transmission Date: 20071010
  Serious: Yes (Other)
  Sender: FDA-Public Use
  Company Number: SPV1-2006-02060

PATIENT
  Sex: Male

DRUGS (1)
  1. DAYTRANA [Suspect]
     Indication: PSYCHOMOTOR HYPERACTIVITY
     Dosage: 20 MG EVERY MORNING, TRANSDERMAL
     Route: 062
     Dates: start: 20060915, end: 20061013

REACTIONS (2)
  - APPLICATION SITE DERMATITIS [None]
  - APPLICATION SITE VESICLES [None]
